FAERS Safety Report 20946669 (Version 1)
Quarter: 2022Q2

REPORT INFORMATION
  Report Type: Spontaneous
  Country: US (occurrence: None)
  Receive Date: 20220610
  Receipt Date: 20220610
  Transmission Date: 20220720
  Serious: Yes (Hospitalization)
  Sender: FDA-Public Use
  Company Number: None

PATIENT
  Age: 20 Month
  Sex: Female

DRUGS (1)
  1. MIGLUSTAT [Suspect]
     Active Substance: MIGLUSTAT
     Indication: Niemann-Pick disease
     Dosage: 200 MG TWICE DAILY ORALLY
     Route: 048
     Dates: start: 20210223

REACTIONS (3)
  - Dyspnoea [None]
  - Therapy interrupted [None]
  - Oxygen saturation decreased [None]

NARRATIVE: CASE EVENT DATE: 20220521
